FAERS Safety Report 8950947 (Version 1)
Quarter: 2012Q4

REPORT INFORMATION
  Report Type: Spontaneous
  Country: US (occurrence: None)
  Receive Date: 20121130
  Receipt Date: 20121130
  Transmission Date: 20130627
  Serious: No
  Sender: FDA-Public Use
  Company Number: None

PATIENT

DRUGS (2)
  1. CLONAZEPAM [Suspect]
     Dosage: Tablet  1 mg
  2. CLONAZEPAM [Suspect]
     Dosage: Tablet,  orally disintegrating  1 mg
     Route: 048

REACTIONS (4)
  - Dizziness [None]
  - Wrong drug administered [None]
  - Wrong drug administered [None]
  - Intercepted drug administration error [None]
